FAERS Safety Report 10915634 (Version 1)
Quarter: 2015Q1

REPORT INFORMATION
  Report Type: Spontaneous
  Country: US (occurrence: US)
  Receive Date: 20150316
  Receipt Date: 20150316
  Transmission Date: 20150721
  Serious: Yes (Hospitalization, Other)
  Sender: FDA-Public Use
  Company Number: US-AUROBINDO-AUR-APL-2015-02108

PATIENT
  Age: 68 Year
  Sex: Male

DRUGS (1)
  1. FLUOXETINE [Suspect]
     Active Substance: FLUOXETINE\FLUOXETINE HYDROCHLORIDE
     Indication: PRODUCT USED FOR UNKNOWN INDICATION
     Dosage: UNK
     Route: 065

REACTIONS (13)
  - Clonus [Recovering/Resolving]
  - Serotonin syndrome [Recovering/Resolving]
  - Gastrointestinal sounds abnormal [Recovering/Resolving]
  - Hyperreflexia [Recovering/Resolving]
  - Hypertonia [Recovering/Resolving]
  - Hypothyroidism [Recovering/Resolving]
  - Overdose [Recovering/Resolving]
  - Thyroiditis [Recovering/Resolving]
  - Myxoedema [Recovering/Resolving]
  - Drug screen positive [Recovering/Resolving]
  - Mania [Recovering/Resolving]
  - Mental status changes [Recovering/Resolving]
  - Blood creatine phosphokinase increased [Recovering/Resolving]
